FAERS Safety Report 9354246 (Version 2)
Quarter: 2013Q2

REPORT INFORMATION
  Report Type: Spontaneous
  Country: NL (occurrence: None)
  Receive Date: 20130613
  Receipt Date: 20130620
  Transmission Date: 20140414
  Serious: Yes (Other)
  Sender: FDA-Public Use
  Company Number: AUR-APL-2013-04883

PATIENT
  Age: 7 Decade
  Sex: Female

DRUGS (5)
  1. AMOXICILLIN [Suspect]
     Indication: PRODUCT USED FOR UNKNOWN INDICATION
     Dosage: 2000 MG (1000 MG,2 IN 1 D),UNKNOWN
  2. PANTOPRAZOLE [Suspect]
     Indication: PRODUCT USED FOR UNKNOWN INDICATION
     Dosage: 80 MG (40 MG,2 IN 1 D),UNKNOWN
  3. CLARITHROMYCIN [Suspect]
     Indication: PRODUCT USED FOR UNKNOWN INDICATION
     Dosage: 1000 MG (500 MG,2 IN 1 D),UNKNOWN
  4. ACESISTEM(VASERETIC) [Concomitant]
  5. VERAPAMIL(VERAPAMIL) [Concomitant]

REACTIONS (2)
  - Bronchospasm [None]
  - Angioedema [None]
